FAERS Safety Report 24438331 (Version 1)
Quarter: 2024Q4

REPORT INFORMATION
  Report Type: Other
  Country: US (occurrence: US)
  Receive Date: 20241015
  Receipt Date: 20241015
  Transmission Date: 20250115
  Serious: Yes (Life-Threatening, Hospitalization, Other)
  Sender: CAPLIN STERILES LIMITED
  Company Number: US-Caplin Steriles Limited-2163075

PATIENT
  Age: 20 Year
  Sex: Male

DRUGS (9)
  1. TRANEXAMIC ACID [Suspect]
     Active Substance: TRANEXAMIC ACID
     Indication: Product used for unknown indication
  2. LIDOCAINE [Concomitant]
     Active Substance: LIDOCAINE
  3. DESFLURANE [Concomitant]
     Active Substance: DESFLURANE
  4. MIDAZOLAM [Concomitant]
     Active Substance: MIDAZOLAM
  5. DEXMEDETOMIDINE [Concomitant]
     Active Substance: DEXMEDETOMIDINE
  6. SEVOFLURANE [Concomitant]
     Active Substance: SEVOFLURANE
  7. SUFENTANIL CITRATE [Concomitant]
     Active Substance: SUFENTANIL CITRATE
  8. FENTANYL [Concomitant]
     Active Substance: FENTANYL
  9. PROPOFOL [Concomitant]
     Active Substance: PROPOFOL

REACTIONS (1)
  - Anaphylactic shock [Recovered/Resolved]
